FAERS Safety Report 9379716 (Version 1)
Quarter: 2013Q2

REPORT INFORMATION
  Report Type: Spontaneous
  Country: GB (occurrence: None)
  Receive Date: 20130627
  Receipt Date: 20130627
  Transmission Date: 20140414
  Serious: Yes (Other)
  Sender: FDA-Public Use
  Company Number: GER/UKI/13/0030188

PATIENT
  Age: 71 Year
  Sex: Male

DRUGS (8)
  1. CLOPIDOGREL (CLOPIDOGREL) [Suspect]
     Indication: CEREBROVASCULAR ACCIDENT PROPHYLAXIS
     Route: 048
     Dates: start: 201212, end: 20130602
  2. BISOPROLOL(BISOPROLOL) [Concomitant]
  3. CO-CODAMOL(PANADEINE CO) [Concomitant]
  4. GLICLAZIDE(GLICLAZIDE) [Concomitant]
  5. NICORANDIL(NICORANDIL) [Concomitant]
  6. OMEPRAZOLE(OMEPRAZOLE) [Concomitant]
  7. PRAVASTATIN(PRAVASTATIN) [Concomitant]
  8. RAMIPRIL(RAMIPRIL) [Concomitant]

REACTIONS (2)
  - Hyperglycaemia [None]
  - Diabetes mellitus inadequate control [None]
